FAERS Safety Report 12505745 (Version 2)
Quarter: 2016Q4

REPORT INFORMATION
  Report Type: Report from Study
  Country: US (occurrence: US)
  Receive Date: 20160628
  Receipt Date: 20161011
  Transmission Date: 20170207
  Serious: Yes (Other)
  Sender: FDA-Public Use
  Company Number: US-BAYER-2016-111926

PATIENT
  Age: 68 Year
  Sex: Male

DRUGS (26)
  1. ASPIRIN. [Concomitant]
     Active Substance: ASPIRIN
     Dosage: 81 MG, QD
     Route: 048
  2. FLUTICASONE PROPIONATE. [Concomitant]
     Active Substance: FLUTICASONE PROPIONATE
     Dosage: 1 PUFF(S), QD
     Route: 055
  3. MARINOL [Concomitant]
     Active Substance: DRONABINOL
     Dosage: 5 MG, BID
     Route: 048
  4. PHOSPHATIDYL SERINE [Concomitant]
     Active Substance: PHOSPHATIDYL SERINE
  5. POTASSIUM CHLORIDE. [Concomitant]
     Active Substance: POTASSIUM CHLORIDE
     Dosage: 3 DF, QD
     Route: 048
  6. ZITHROMAX [Concomitant]
     Active Substance: AZITHROMYCIN DIHYDRATE
     Dosage: 250 MG, 2 TABS DAY 1; 1 TAB DAYS 2-5
     Route: 048
  7. ALLOPURINOL. [Concomitant]
     Active Substance: ALLOPURINOL
     Dosage: 200 MG, QD
     Route: 048
  8. CLEOCIN [Concomitant]
     Active Substance: CLINDAMYCIN PHOSPHATE
     Dosage: 2 %, BID
     Route: 061
  9. MAGNESIUM [Concomitant]
     Active Substance: MAGNESIUM
     Dosage: 64 MG, BID
     Route: 048
  10. FLUOCINONIDE [FLUOCINONIDE] [Concomitant]
     Dosage: 0.5 %, BID
     Route: 061
  11. STIVARGA [Suspect]
     Active Substance: REGORAFENIB
     Indication: COLON CANCER
     Dosage: 120 MG, QD
     Route: 048
     Dates: start: 20160520
  12. BENADRYL ALLERGY [Concomitant]
     Active Substance: DIPHENHYDRAMINE HYDROCHLORIDE
     Dosage: 25 MG X 2; PRIOR TO SCANS
     Route: 048
  13. ERGOCALCIFEROL. [Concomitant]
     Active Substance: ERGOCALCIFEROL
     Dosage: 50000 U, OW
     Route: 048
  14. PROCHLORPERAZINE MALEATE. [Concomitant]
     Active Substance: PROCHLORPERAZINE MALEATE
     Indication: NAUSEA
     Dosage: 10 MG, PRN
     Route: 048
  15. TRIAMCINOLONE ACETONIDE. [Concomitant]
     Active Substance: TRIAMCINOLONE ACETONIDE
     Dosage: 0.025 %, BID
     Route: 061
  16. HYDROCHLOROTHIAZIDE. [Concomitant]
     Active Substance: HYDROCHLOROTHIAZIDE
     Dosage: 25 MG, UNK
     Route: 048
  17. LEVOFLOXACIN. [Concomitant]
     Active Substance: LEVOFLOXACIN
     Dosage: 500 MG, QD
     Route: 048
  18. PREDNISONE. [Concomitant]
     Active Substance: PREDNISONE
     Dosage: 50 MG, PRN
  19. DEXAMETHASONE. [Concomitant]
     Active Substance: DEXAMETHASONE
     Dosage: 4 MG X 2, ON DAYS 2, 3, AND 4 AFTER CHEMO
     Route: 048
  20. IMODIUM A-D [Concomitant]
     Active Substance: LOPERAMIDE HYDROCHLORIDE
     Dosage: 2 MG, PRN
  21. PEPCID [Concomitant]
     Active Substance: FAMOTIDINE
     Dosage: 20 MG, PRN; PRIOR TO SCANS
     Route: 048
  22. STIVARGA [Suspect]
     Active Substance: REGORAFENIB
     Indication: COLON CANCER
     Dosage: 160 MG, QD
     Route: 048
     Dates: end: 20160619
  23. DICLOFENAC POTASSIUM. [Concomitant]
     Active Substance: DICLOFENAC POTASSIUM
     Dosage: 50 MG, QID
     Route: 048
  24. DOXYCYCLINE MONOHYDRATE [DOXYCYCLINE] [Concomitant]
     Dosage: 100 MG, QD
     Route: 048
  25. HYDROXYZINE HCL [Concomitant]
     Active Substance: HYDROXYZINE HYDROCHLORIDE
  26. VITAMIN B COMPLEX [Concomitant]
     Active Substance: CYANOCOBALAMIN\DEXPANTHENOL\NIACINAMIDE\PYRIDOXINE HYDROCHLORIDE\RIBOFLAVIN 5^-PHOSPHATE SODIUM\THIAMINE HYDROCHLORIDE\VITAMIN B COMPLEX
     Dosage: 1 DF, QD
     Route: 048

REACTIONS (6)
  - Peripheral swelling [Recovering/Resolving]
  - Palmar-plantar erythrodysaesthesia syndrome [Recovering/Resolving]
  - Fatigue [None]
  - Anaemia [None]
  - Pain in extremity [Recovering/Resolving]
  - Myalgia [None]

NARRATIVE: CASE EVENT DATE: 2016
